FAERS Safety Report 6786112-6 (Version None)
Quarter: 2010Q2

REPORT INFORMATION
  Report Type: 
  Country: None (occurrence: None)
  Receive Date: 20100621
  Receipt Date: 20100621
  Transmission Date: 20101027
  Serious: Yes (Other)
  Sender: FDA-Public Use
  Company Number: None

PATIENT
  Age: 14 Year
  Sex: Female
  Weight: 34.927 kg

DRUGS (1)
  1. TRAMADOL HCL [Suspect]
     Indication: HERNIA
     Dosage: 1 TO2 TABLETS EVERY 4 HOURS

REACTIONS (8)
  - CHILLS [None]
  - CONFUSIONAL STATE [None]
  - FEAR [None]
  - FEELING COLD [None]
  - HALLUCINATION [None]
  - MYDRIASIS [None]
  - PALLOR [None]
  - PYREXIA [None]
